FAERS Safety Report 17415913 (Version 1)
Quarter: 2020Q1

REPORT INFORMATION
  Report Type: Spontaneous
  Country: US (occurrence: US)
  Receive Date: 20200130
  Receipt Date: 20200130
  Transmission Date: 20200409
  Serious: No
  Sender: FDA-Public Use
  Company Number: None

PATIENT
  Age: 65 Year
  Sex: Female
  Weight: 58.97 kg

DRUGS (1)
  1. LATANOPROST OPTH SOLN [Suspect]
     Active Substance: LATANOPROST

REACTIONS (1)
  - Physical product label issue [None]

NARRATIVE: CASE EVENT DATE: 20200129
